FAERS Safety Report 4667081-1 (Version None)
Quarter: 2005Q2

REPORT INFORMATION
  Report Type: 
  Country: None (occurrence: None)
  Receive Date: 20050520
  Receipt Date: 20041214
  Transmission Date: 20051028
  Serious: Yes (Disabling)
  Sender: FDA-Public Use
  Company Number: PHBS2004IT16699

PATIENT
  Sex: Male

DRUGS (3)
  1. INTERFERON ALFA-2A [Concomitant]
     Dosage: 3 U/L PER DAY
     Route: 058
     Dates: end: 20040430
  2. DOBETIN [Concomitant]
     Dosage: 5 U/L PER DAY
     Route: 030
     Dates: start: 20040101, end: 20040430
  3. ZOMETA [Suspect]
     Indication: MULTIPLE MYELOMA
     Dosage: 4 MG, QMO
     Route: 042
     Dates: start: 20010601, end: 20041115

REACTIONS (4)
  - IMPAIRED HEALING [None]
  - OSTEOMYELITIS [None]
  - SURGERY [None]
  - TOOTH EXTRACTION [None]
